FAERS Safety Report 5156500-2 (Version None)
Quarter: 2006Q4

REPORT INFORMATION
  Report Type: 
  Country: None (occurrence: None)
  Receive Date: 20061113
  Receipt Date: 20061028
  Transmission Date: 20070319
  Serious: Yes (Other)
  Sender: FDA-Public Use
  Company Number: 2006132683

PATIENT
  Sex: 0

DRUGS (3)
  1. LYRICA [Suspect]
     Indication: BACK PAIN
  2. METHADONE HCL [Suspect]
  3. ALL OTHER THERAPEUTIC PRODUCTS (ALL OTHER THERAPEUTIC PRODUCTS) [Concomitant]

REACTIONS (2)
  - DEMENTIA [None]
  - UNEVALUABLE EVENT [None]
